FAERS Safety Report 5197603-6 (Version None)
Quarter: 2007Q1

REPORT INFORMATION
  Report Type: 
  Country: None (occurrence: None)
  Receive Date: 20070103
  Receipt Date: 20061102
  Transmission Date: 20070707
  Serious: Yes (Hospitalization)
  Sender: FDA-Public Use
  Company Number: US-BOEHRINGER INGELHEIM PHARMACEUTICALS, INC.-2006-BP-12912BP

PATIENT
  Age: 18 Year
  Sex: Female

DRUGS (11)
  1. APTIVUS/RITONAVIR CAPSULES [Suspect]
     Indication: HIV INFECTION
     Dosage: TPV/RTV 1000/400 MG
     Route: 048
  2. FUZEON [Concomitant]
     Indication: HIV INFECTION
  3. FUZEON [Concomitant]
     Indication: ACQUIRED IMMUNODEFICIENCY SYNDROME
  4. ZIDOVUDINE [Concomitant]
     Indication: HIV INFECTION
  5. ZIDOVUDINE [Concomitant]
     Indication: ACQUIRED IMMUNODEFICIENCY SYNDROME
  6. LAMIVUDINE [Concomitant]
     Indication: HIV INFECTION
  7. LAMIVUDINE [Concomitant]
     Indication: ACQUIRED IMMUNODEFICIENCY SYNDROME
  8. TENOFOVIR [Concomitant]
     Indication: HIV INFECTION
  9. TENOFOVIR [Concomitant]
     Indication: ACQUIRED IMMUNODEFICIENCY SYNDROME
  10. DILANTIN [Concomitant]
     Indication: CONVULSION
  11. PHENOBARBITAL TAB [Concomitant]
     Indication: CONVULSION

REACTIONS (1)
  - MENTAL STATUS CHANGES [None]
